FAERS Safety Report 13164990 (Version 1)
Quarter: 2017Q1

REPORT INFORMATION
  Report Type: Spontaneous
  Country: FR (occurrence: FR)
  Receive Date: 20170130
  Receipt Date: 20170130
  Transmission Date: 20170428
  Serious: Yes (Life-Threatening)
  Sender: FDA-Public Use
  Company Number: FR-BEH-2017077697

PATIENT
  Age: 63 Year
  Sex: Female

DRUGS (3)
  1. PRIVIGEN [Suspect]
     Active Substance: HUMAN IMMUNOGLOBULIN G
     Indication: IMMUNOGLOBULINS DECREASED
     Dosage: UNK
     Route: 042
     Dates: start: 20170110, end: 20170110
  2. MABTHERA [Concomitant]
     Active Substance: RITUXIMAB
     Dosage: UNK
     Route: 042
     Dates: start: 20170109, end: 20170109
  3. BENDAMUSTINE HYDROCHLORIDE. [Concomitant]
     Active Substance: BENDAMUSTINE HYDROCHLORIDE
     Indication: CHRONIC LYMPHOCYTIC LEUKAEMIA
     Dosage: UNK
     Route: 042
     Dates: start: 20170109, end: 20170110

REACTIONS (2)
  - Anaphylactic shock [Recovered/Resolved]
  - Blood pressure decreased [Recovered/Resolved]

NARRATIVE: CASE EVENT DATE: 20170110
